FAERS Safety Report 4380280-1 (Version None)
Quarter: 2004Q2

REPORT INFORMATION
  Report Type: 
  Country: None (occurrence: None)
  Receive Date: 20040616
  Receipt Date: 20040616
  Transmission Date: 20050107
  Serious: Yes (Other)
  Sender: FDA-Public Use
  Company Number: None

PATIENT
  Age: 69 Year
  Sex: Female
  Weight: 63.5036 kg

DRUGS (2)
  1. ALBUTEROL [Suspect]
     Dosage: 4/5 TIMES
  2. ALBUTEROL [Suspect]

REACTIONS (4)
  - CHEST PAIN [None]
  - PAIN [None]
  - PHARMACEUTICAL PRODUCT COMPLAINT [None]
  - REACTION TO DRUG EXCIPIENT [None]
